FAERS Safety Report 25951761 (Version 2)
Quarter: 2025Q4

REPORT INFORMATION
  Report Type: Spontaneous
  Country: US (occurrence: US)
  Receive Date: 20251023
  Receipt Date: 20251223
  Transmission Date: 20260117
  Serious: No
  Sender: CIPLA
  Company Number: US-CIPLA LTD.-2025US12959

PATIENT

DRUGS (4)
  1. ALBUTEROL [Suspect]
     Active Substance: ALBUTEROL
     Indication: Asthma
     Dosage: 180 MICROGRAM, QID  REGULAR USER SINCE MANY YEARS (4 TIMES A DAY IN THE AFTERNOON, EVENING AND AFTER
  2. ALBUTEROL [Suspect]
     Active Substance: ALBUTEROL
     Dosage: 180 MICROGRAM, QID 1ST INHALER (4 TIMES A DAY IN THE AFTERNOON, EVENING AND AFTER NEEDED MORE DURING
  3. ALBUTEROL [Suspect]
     Active Substance: ALBUTEROL
     Dosage: 180 MICROGRAM, QID 2ND INHALER (4 TIMES A DAY IN THE AFTERNOON, EVENING AND AFTER NEEDED MORE DURING
  4. ALBUTEROL [Suspect]
     Active Substance: ALBUTEROL
     Dosage: 180 MICROGRAM, QID 3RD INHALER (4 TIMES A DAY IN THE AFTERNOON, EVENING AND AFTER NEEDED MORE DURING
     Dates: start: 2025

REACTIONS (5)
  - Drug dose omission by device [Unknown]
  - Product substitution issue [Unknown]
  - Device malfunction [Unknown]
  - Product packaging quantity issue [Unknown]
  - Device delivery system issue [Unknown]

NARRATIVE: CASE EVENT DATE: 20250801
